FAERS Safety Report 8770922 (Version 1)
Quarter: 2012Q4

REPORT INFORMATION
  Report Type: 
  Country: TR (occurrence: TR)
  Receive Date: 20120906
  Receipt Date: 20120906
  Transmission Date: 20130627
  Serious: Yes (Hospitalization)
  Sender: FDA-Public Use
  Company Number: PHHY2012TR074977

PATIENT
  Age: 26 Year
  Sex: Male

DRUGS (4)
  1. ENOXAPARIN [Suspect]
     Indication: DEEP VEIN THROMBOSIS
     Route: 058
  2. HEPARIN [Suspect]
     Indication: DEEP VEIN THROMBOSIS
     Dosage: UNK
  3. MONTELUKAST [Concomitant]
     Dosage: 10 mg, UNK
  4. WARFARIN [Concomitant]

REACTIONS (12)
  - Asthma [Recovered/Resolved]
  - Rhonchi [Recovered/Resolved]
  - Type I hypersensitivity [Recovered/Resolved]
  - Drug hypersensitivity [Recovered/Resolved]
  - Bronchospasm [Recovered/Resolved]
  - Angioedema [Recovered/Resolved]
  - Hypotension [Recovered/Resolved]
  - Dyspnoea [Recovered/Resolved]
  - Pruritus [Recovered/Resolved]
  - Urticaria [Recovered/Resolved]
  - Rash [Unknown]
  - Cough [Recovered/Resolved]
